FAERS Safety Report 8960892 (Version 1)
Quarter: 2012Q4

REPORT INFORMATION
  Report Type: 
  Country: EC (occurrence: EC)
  Receive Date: 20121212
  Receipt Date: 20121212
  Transmission Date: 20130627
  Serious: Yes (Hospitalization)
  Sender: FDA-Public Use
  Company Number: PHHY2012EC113095

PATIENT
  Age: 37 Year
  Sex: Female

DRUGS (1)
  1. TRILEPTAL [Suspect]
     Dosage: 300 mg, UNK
     Route: 048
     Dates: start: 2009

REACTIONS (1)
  - Accident [Recovering/Resolving]
